FAERS Safety Report 5704208-4 (Version None)
Quarter: 2008Q2

REPORT INFORMATION
  Report Type: 
  Country: None (occurrence: None)
  Receive Date: 20080414
  Receipt Date: 20080222
  Transmission Date: 20081010
  Serious: No
  Sender: FDA-Public Use
  Company Number: US-BAYER-200815433NA

PATIENT
  Age: 50 Year
  Sex: Male
  Weight: 73 kg

DRUGS (4)
  1. ULTRAVIST 370 [Suspect]
     Indication: COMPUTERISED TOMOGRAM THORAX
     Route: 042
     Dates: start: 20080222, end: 20080222
  2. PLAVIX [Concomitant]
     Route: 065
  3. ALTACE [Concomitant]
     Route: 065
  4. ZOCOR [Concomitant]
     Route: 065

REACTIONS (1)
  - URTICARIA [None]
